FAERS Safety Report 5913030-5 (Version None)
Quarter: 2008Q4

REPORT INFORMATION
  Report Type: 
  Country: None (occurrence: None)
  Receive Date: 20081008
  Receipt Date: 20080926
  Transmission Date: 20090506
  Serious: Yes (Other)
  Sender: FDA-Public Use
  Company Number: US-PFIZER INC-2008083112

PATIENT
  Sex: Male
  Weight: 89.4 kg

DRUGS (3)
  1. CHANTIX [Suspect]
     Indication: SMOKING CESSATION THERAPY
     Dates: start: 20080920, end: 20080925
  2. ZITHROMAX [Suspect]
     Indication: EAR INFECTION
  3. ACETYLSALICYLIC ACID SRT [Concomitant]

REACTIONS (5)
  - CARDIAC OPERATION [None]
  - EAR INFECTION [None]
  - LUNG INFECTION [None]
  - SUICIDAL IDEATION [None]
  - UPPER RESPIRATORY TRACT INFECTION [None]
